FAERS Safety Report 21420105 (Version 1)
Quarter: 2022Q4

REPORT INFORMATION
  Report Type: Spontaneous
  Country: US (occurrence: US)
  Receive Date: 20221007
  Receipt Date: 20221007
  Transmission Date: 20230113
  Serious: Yes (Other)
  Sender: FDA-Public Use
  Company Number: US-BRISTOL-MYERS SQUIBB COMPANY-2022-115284

PATIENT
  Age: 63 Year
  Sex: Female
  Weight: 58.1 kg

DRUGS (1)
  1. ABRAXANE [Suspect]
     Active Substance: PACLITAXEL
     Indication: Breast cancer female
     Dosage: DOSE : 140MG;     FREQ : EVERY 28 DAYS
     Route: 042
     Dates: start: 20220829

REACTIONS (2)
  - Acute kidney injury [Unknown]
  - Off label use [Unknown]
